FAERS Safety Report 7968384-5 (Version None)
Quarter: 2011Q4

REPORT INFORMATION
  Report Type: 
  Country: None (occurrence: None)
  Receive Date: 20111209
  Receipt Date: 20111201
  Transmission Date: 20120403
  Serious: Yes (Death, Hospitalization, Other)
  Sender: FDA-Public Use
  Company Number: JP-CEPHALON-2011004266

PATIENT
  Sex: Male
  Weight: 41 kg

DRUGS (7)
  1. BENDAMUSTINE HCL [Suspect]
     Indication: NON-HODGKIN'S LYMPHOMA
     Route: 042
     Dates: start: 20110117, end: 20110118
  2. GRANISETRON HCL [Concomitant]
     Dates: start: 20110117, end: 20110118
  3. PALONOSETRON HYDROCHLORIDE [Concomitant]
  4. SULFAMETHOXAZOLE AND TRIMETHOPRIM [Concomitant]
     Dates: start: 20110124
  5. BENDAMUSTINE HCL [Suspect]
     Route: 042
     Dates: start: 20110205, end: 20110206
  6. SENNOSIDE [Concomitant]
     Dates: start: 20110124
  7. FUROSEMIDE [Concomitant]
     Dates: start: 20110117, end: 20110118

REACTIONS (5)
  - PNEUMONIA ESCHERICHIA [None]
  - LYMPHOCYTE COUNT DECREASED [None]
  - ORGANISING PNEUMONIA [None]
  - HEPATIC FUNCTION ABNORMAL [None]
  - NEUTROPHIL COUNT DECREASED [None]
